FAERS Safety Report 8520107-7 (Version None)
Quarter: 2012Q3

REPORT INFORMATION
  Report Type: 
  Country: None (occurrence: None)
  Receive Date: 20120719
  Receipt Date: 20110623
  Transmission Date: 20120928
  Serious: No
  Sender: FDA-Public Use
  Company Number: US-MYLANLABS-2011S1013316

PATIENT
  Sex: Male

DRUGS (1)
  1. TIMOLOL MALEATE [Suspect]
     Indication: GLAUCOMA
     Dates: start: 20091223

REACTIONS (3)
  - FLUID RETENTION [None]
  - CARDIAC FAILURE CONGESTIVE [None]
  - DYSPNOEA [None]
